FAERS Safety Report 9548826 (Version 1)
Quarter: 2013Q3

REPORT INFORMATION
  Report Type: Spontaneous
  Country: IE (occurrence: None)
  Receive Date: 20130919
  Receipt Date: 20130919
  Transmission Date: 20140515
  Serious: Yes (Hospitalization)
  Sender: FDA-Public Use
  Company Number: 1892670

PATIENT
  Age: 64 Year
  Sex: Male

DRUGS (1)
  1. METHOTREXATE [Suspect]
     Indication: PSORIASIS
     Dosage: 7.5 MG MILLIGRAM(S), 1 WEE, UNKNOWN

REACTIONS (8)
  - Necrotising fasciitis [None]
  - Fall [None]
  - Pain in extremity [None]
  - Erythema [None]
  - Cellulitis [None]
  - General physical health deterioration [None]
  - Skin graft [None]
  - Limb injury [None]
